FAERS Safety Report 5196983-5 (Version None)
Quarter: 2006Q4

REPORT INFORMATION
  Report Type: 
  Country: None (occurrence: None)
  Receive Date: 20061227
  Receipt Date: 20061212
  Transmission Date: 20070319
  Serious: Yes (Other)
  Sender: FDA-Public Use
  Company Number: 2006155173

PATIENT
  Age: 53 Year
  Sex: Male

DRUGS (1)
  1. VIAGRA [Suspect]
     Dosage: 50 MG (50 MG,1 AS NECESSARY), ORAL
     Route: 048
     Dates: start: 20061208

REACTIONS (2)
  - HERPES ZOSTER [None]
  - MYALGIA INTERCOSTAL [None]
